FAERS Safety Report 16193220 (Version 5)
Quarter: 2019Q3

REPORT INFORMATION
  Report Type: Spontaneous
  Country: CA (occurrence: CA)
  Receive Date: 20190413
  Receipt Date: 20190926
  Transmission Date: 20191004
  Serious: Yes (Other)
  Sender: FDA-Public Use
  Company Number: CA-CELLTRION INC.-2018CA019739

PATIENT

DRUGS (11)
  1. INFLECTRA [Suspect]
     Active Substance: INFLIXIMAB-DYYB
     Dosage: 500 MG, EVERY 0, 2, 6 AND THEN EVERY 8 WEEKS
     Route: 042
     Dates: start: 20180531
  2. INFLECTRA [Suspect]
     Active Substance: INFLIXIMAB-DYYB
     Dosage: 500 MG, EVERY 4 WEEKS
     Route: 042
     Dates: start: 20190911
  3. INFLECTRA [Suspect]
     Active Substance: INFLIXIMAB-DYYB
     Dosage: 500 MG, EVERY 0, 2, 6 AND THEN EVERY 8 WEEKS
     Route: 042
     Dates: start: 20180503
  4. INFLECTRA [Suspect]
     Active Substance: INFLIXIMAB-DYYB
     Dosage: 500 MG, EVERY 0, 2, 6 AND THEN EVERY 8 WEEKS
     Route: 042
     Dates: start: 20180920
  5. INFLECTRA [Suspect]
     Active Substance: INFLIXIMAB-DYYB
     Dosage: 500 MG, EVERY 0, 2, 6 AND THEN EVERY 8 WEEKS
     Route: 042
     Dates: start: 20181115
  6. INFLECTRA [Suspect]
     Active Substance: INFLIXIMAB-DYYB
     Dosage: 500 MG, EVERY 0, 2, 6 AND THEN EVERY 8 WEEKS
     Route: 042
     Dates: start: 20190116
  7. INFLECTRA [Suspect]
     Active Substance: INFLIXIMAB-DYYB
     Dosage: 5 MG/KG, Q 8 WEEKS
     Route: 042
     Dates: start: 201902
  8. INFLECTRA [Suspect]
     Active Substance: INFLIXIMAB-DYYB
     Dosage: 500 MG, EVERY 0, 2, 6 AND THEN EVERY 8 WEEKS
     Route: 042
     Dates: start: 20190307
  9. INFLECTRA [Suspect]
     Active Substance: INFLIXIMAB-DYYB
     Dosage: 500 MG, EVERY 4 WEEKS
     Route: 042
     Dates: start: 20190409
  10. VITAMIN D [Concomitant]
     Active Substance: VITAMIN D NOS
     Dosage: UNK
     Route: 065
     Dates: start: 2018
  11. INFLECTRA [Suspect]
     Active Substance: INFLIXIMAB-DYYB
     Indication: CROHN^S DISEASE
     Dosage: 500 MG, EVERY 0, 2, 6 AND THEN EVERY 8 WEEKS
     Route: 042
     Dates: start: 20180420, end: 20190307

REACTIONS (17)
  - Primary biliary cholangitis [Unknown]
  - Intentional product use issue [Unknown]
  - Inappropriate schedule of product administration [Unknown]
  - Rash erythematous [Not Recovered/Not Resolved]
  - Off label use [Unknown]
  - Nephrolithiasis [Unknown]
  - Condition aggravated [Unknown]
  - Nasopharyngitis [Unknown]
  - Loss of personal independence in daily activities [Unknown]
  - Rash pruritic [Not Recovered/Not Resolved]
  - Hepatic enzyme increased [Unknown]
  - Rash [Not Recovered/Not Resolved]
  - Frequent bowel movements [Unknown]
  - Lymphadenopathy [Unknown]
  - Abdominal pain [Unknown]
  - Heart rate decreased [Unknown]
  - Sensitivity to weather change [Unknown]

NARRATIVE: CASE EVENT DATE: 20180503
